FAERS Safety Report 8374979-X (Version None)
Quarter: 2012Q2

REPORT INFORMATION
  Report Type: 
  Country: None (occurrence: None)
  Receive Date: 20120521
  Receipt Date: 20120509
  Transmission Date: 20120825
  Serious: Yes (Death, Other)
  Sender: FDA-Public Use
  Company Number: US-ROCHE-1069826

PATIENT
  Age: 5 Year
  Sex: Male

DRUGS (3)
  1. RITUXIMAB [Concomitant]
  2. ALTEPLASE [Suspect]
     Indication: PULMONARY EMBOLISM
  3. ANTICOAGULANTS [Suspect]
     Indication: PULMONARY EMBOLISM

REACTIONS (4)
  - DRUG INEFFECTIVE [None]
  - PULMONARY HAEMORRHAGE [None]
  - CARDIO-RESPIRATORY ARREST [None]
  - PNEUMOTHORAX [None]
